FAERS Safety Report 8816291 (Version 1)
Quarter: 2012Q4

REPORT INFORMATION
  Report Type: Spontaneous
  Country: US (occurrence: None)
  Receive Date: 20120927
  Receipt Date: 20120927
  Transmission Date: 20130627
  Serious: Yes (Hospitalization)
  Sender: FDA-Public Use
  Company Number: None

PATIENT

DRUGS (1)
  1. ATORVASTATIN [Suspect]
     Indication: HIGH CHOLESTEROL
     Dosage: 1 tablet at bedtime po
     Route: 048
     Dates: start: 20120831, end: 20120924

REACTIONS (6)
  - Pain in extremity [None]
  - Toothache [None]
  - Muscle spasms [None]
  - Fatigue [None]
  - Insomnia [None]
  - Product substitution issue [None]
